FAERS Safety Report 7271827-6 (Version None)
Quarter: 2011Q1

REPORT INFORMATION
  Report Type: 
  Country: None (occurrence: None)
  Receive Date: 20110203
  Receipt Date: 20110124
  Transmission Date: 20110831
  Serious: Yes (Hospitalization)
  Sender: FDA-Public Use
  Company Number: SE-BAXTER-2010BH029218

PATIENT
  Age: 75 Year
  Sex: Male

DRUGS (9)
  1. GAMMAGARD LIQUID [Suspect]
     Indication: MYASTHENIA GRAVIS
     Route: 042
     Dates: end: 20101103
  2. BRICANYL [Concomitant]
  3. ALENDRONIC ACID [Concomitant]
  4. ATROPINE [Concomitant]
  5. GAMMAGARD LIQUID [Suspect]
     Indication: OFF LABEL USE
     Route: 042
     Dates: end: 20101103
  6. IMUREL [Concomitant]
  7. PREDNISOLONE [Concomitant]
  8. OMEPRAZOLE [Concomitant]
  9. MESTINON [Concomitant]

REACTIONS (4)
  - DRUG INEFFECTIVE [None]
  - RENAL FAILURE [None]
  - FATIGUE [None]
  - BLOOD CREATININE INCREASED [None]
